FAERS Safety Report 5173623-2 (Version None)
Quarter: 2006Q4

REPORT INFORMATION
  Report Type: 
  Country: None (occurrence: None)
  Receive Date: 20061214
  Receipt Date: 20061024
  Transmission Date: 20070319
  Serious: Yes (Other)
  Sender: FDA-Public Use
  Company Number: DE-ELI_LILLY_AND_COMPANY-DE200611000292

PATIENT
  Age: 61 Year
  Sex: Female

DRUGS (3)
  1. BELOC ZOK [Concomitant]
  2. EVISTA [Suspect]
     Indication: BREAST CANCER
     Dosage: 60 MG, DAILY (1/D)
     Route: 048
     Dates: start: 20030101
  3. CLINOFEM [Concomitant]

REACTIONS (2)
  - PLATELET COUNT DECREASED [None]
  - THROMBOCYTOPENIA [None]
